FAERS Safety Report 9775261 (Version 2)
Quarter: 2013Q4

REPORT INFORMATION
  Report Type: Report from Study
  Country: US (occurrence: US)
  Receive Date: 20131220
  Receipt Date: 20131231
  Transmission Date: 20140711
  Serious: Yes (Hospitalization, Other)
  Sender: FDA-Public Use
  Company Number: US-ROCHE-1317937

PATIENT
  Age: 23 Year
  Sex: Female

DRUGS (15)
  1. XOLAIR [Suspect]
     Indication: ASTHMA
     Route: 065
  2. XOLAIR [Suspect]
     Dosage: EVERY TWO WEEKS 300 MG
     Route: 065
  3. PAXIL [Concomitant]
     Route: 048
  4. THEOPHYLLINE [Concomitant]
     Dosage: 800MG DAILY
     Route: 048
  5. QVAR [Concomitant]
     Dosage: 2 PUFFS DAILY
     Route: 065
  6. ADDERALL XR [Concomitant]
     Dosage: AS NEEDED
     Route: 048
  7. XANAX [Concomitant]
     Dosage: AS NEEDED
     Route: 048
  8. BACTRIM [Concomitant]
     Dosage: 1 TABLET EVERY OTHER DAY
     Route: 048
  9. ADVAIR DISKUS [Concomitant]
     Dosage: 1 PUFF BID
     Route: 065
  10. ALBUTEROL [Concomitant]
     Dosage: 2 PUFFS Q4HOURS
     Route: 048
  11. DUONEB [Concomitant]
     Dosage: 1 VIAL NEBULIZED Q4HOURS OR PRN
     Route: 065
  12. FLONASE [Concomitant]
     Dosage: 2 SPRAYS IN EACH NOSTRIL BID
     Route: 045
  13. OMEPRAZOLE [Concomitant]
     Route: 048
  14. PREDNISONE [Concomitant]
     Dosage: AS DIRECTED
     Route: 048
  15. SINGULAIR [Concomitant]
     Route: 048

REACTIONS (60)
  - Wheezing [Unknown]
  - Dyspnoea [Unknown]
  - Asthma [Recovered/Resolved]
  - Candida infection [Unknown]
  - Orthopnoea [Unknown]
  - Diarrhoea [Not Recovered/Not Resolved]
  - Dyspnoea paroxysmal nocturnal [Unknown]
  - Choking [Unknown]
  - Weight decreased [Unknown]
  - Chills [Unknown]
  - Fatigue [Unknown]
  - Pyrexia [Unknown]
  - Night sweats [Unknown]
  - Vision blurred [Unknown]
  - Tinnitus [Unknown]
  - Nasal congestion [Unknown]
  - Dysphonia [Unknown]
  - Oropharyngeal pain [Unknown]
  - Chest pain [Unknown]
  - Intermittent claudication [Unknown]
  - Tachycardia [Unknown]
  - Pleuritic pain [Unknown]
  - Abdominal pain [Unknown]
  - Decreased appetite [Unknown]
  - Abdominal distension [Unknown]
  - Vomiting [Unknown]
  - Back pain [Unknown]
  - Myalgia [Unknown]
  - Arthralgia [Unknown]
  - Jaundice [Unknown]
  - Headache [Unknown]
  - Hot flush [Unknown]
  - Anxiety [Unknown]
  - Diplopia [Unknown]
  - Tinnitus [Unknown]
  - Ear pain [Unknown]
  - Epistaxis [Unknown]
  - Upper-airway cough syndrome [Unknown]
  - Rhinorrhoea [Unknown]
  - Sneezing [Unknown]
  - Sinus headache [Unknown]
  - Sinus headache [Unknown]
  - Toothache [Unknown]
  - Increased upper airway secretion [Unknown]
  - Neck pain [Unknown]
  - Cough [Unknown]
  - Dyspepsia [Unknown]
  - Nausea [Unknown]
  - Arthralgia [Unknown]
  - Dizziness [Unknown]
  - Asthenia [Unknown]
  - Gait disturbance [Unknown]
  - Balance disorder [Unknown]
  - Panic attack [Unknown]
  - Breath sounds abnormal [Unknown]
  - Throat irritation [Unknown]
  - Hepatobiliary scan abnormal [Unknown]
  - Oedema peripheral [Unknown]
  - Eosinophil count increased [Unknown]
  - Epistaxis [Unknown]
